FAERS Safety Report 16951978 (Version 1)
Quarter: 2019Q4

REPORT INFORMATION
  Report Type: Spontaneous
  Country: US (occurrence: US)
  Receive Date: 20190903
  Receipt Date: 20190903
  Transmission Date: 20200122
  Serious: Yes (Hospitalization)
  Sender: FDA-Public Use
  Company Number: None

PATIENT
  Age: 85 Year
  Sex: Male
  Weight: 72 kg

DRUGS (2)
  1. INSULIN [Suspect]
     Active Substance: INSULIN NOS
     Indication: DIABETES MELLITUS
     Route: 058
     Dates: start: 20190221
  2. INSULIN [Suspect]
     Active Substance: INSULIN NOS
     Dosage: ?          OTHER FREQUENCY:AM;?
     Route: 058
     Dates: start: 20190708

REACTIONS (4)
  - Hypoglycaemia [None]
  - Hyperkalaemia [None]
  - Acute kidney injury [None]
  - Gastrointestinal haemorrhage [None]

NARRATIVE: CASE EVENT DATE: 20190816
